FAERS Safety Report 23673054 (Version 5)
Quarter: 2024Q2

REPORT INFORMATION
  Report Type: Spontaneous
  Country: US (occurrence: US)
  Receive Date: 20240326
  Receipt Date: 20240617
  Transmission Date: 20240716
  Serious: Yes (Hospitalization, Other)
  Sender: FDA-Public Use
  Company Number: US-Blueprint Medicines Corporation-2886

PATIENT
  Age: 71 Year
  Sex: Male

DRUGS (3)
  1. AYVAKIT [Suspect]
     Active Substance: AVAPRITINIB
     Indication: Systemic mastocytosis
     Route: 065
  2. AYVAKIT [Suspect]
     Active Substance: AVAPRITINIB
     Route: 065
  3. TIBSOVO [Concomitant]
     Active Substance: IVOSIDENIB
     Indication: Systemic mastocytosis
     Route: 048
     Dates: start: 20240130

REACTIONS (4)
  - Myelodysplastic syndrome [Unknown]
  - Leukaemia [Unknown]
  - Blood test abnormal [Unknown]
  - Tryptase [Unknown]

NARRATIVE: CASE EVENT DATE: 20240401
